FAERS Safety Report 16979562 (Version 1)
Quarter: 2019Q4

REPORT INFORMATION
  Report Type: Spontaneous
  Country: JP (occurrence: JP)
  Receive Date: 20191031
  Receipt Date: 20191031
  Transmission Date: 20200122
  Serious: Yes (Other)
  Sender: FDA-Public Use
  Company Number: JP-PFIZER INC-2019463981

PATIENT
  Age: 4 Decade
  Sex: Female

DRUGS (4)
  1. REMERON [Concomitant]
     Active Substance: MIRTAZAPINE
  2. KAMISHOYOSAN [ANGELICA ACUTILOBA ROOT;ATRACTYLODES LANCEA RHIZOME;BUPL [Suspect]
     Active Substance: HERBALS
  3. ZOLPIDEM TARTRATE. [Concomitant]
     Active Substance: ZOLPIDEM TARTRATE
  4. JZOLOFT [Suspect]
     Active Substance: SERTRALINE HYDROCHLORIDE
     Route: 048

REACTIONS (2)
  - Interstitial lung disease [Unknown]
  - Pericardial effusion [Unknown]
